FAERS Safety Report 25299412 (Version 1)
Quarter: 2025Q2

REPORT INFORMATION
  Report Type: Spontaneous
  Country: US (occurrence: US)
  Receive Date: 20250512
  Receipt Date: 20250512
  Transmission Date: 20250716
  Serious: No
  Sender: ROCHE
  Company Number: US-ROCHE-10000279557

PATIENT
  Sex: Female

DRUGS (1)
  1. KADCYLA [Suspect]
     Active Substance: ADO-TRASTUZUMAB EMTANSINE
     Indication: Breast cancer stage IV
     Route: 065
     Dates: start: 202309

REACTIONS (4)
  - Hepatic function abnormal [Unknown]
  - Platelet count decreased [Unknown]
  - Splenomegaly [Unknown]
  - Portal hypertension [Unknown]
